FAERS Safety Report 24970292 (Version 1)
Quarter: 2025Q1

REPORT INFORMATION
  Report Type: Spontaneous
  Country: US (occurrence: US)
  Receive Date: 20250214
  Receipt Date: 20250214
  Transmission Date: 20250409
  Serious: No
  Sender: BIOFRONTERA BIOSCIENCE
  Company Number: US-Biofrontera-2024BIO00136

PATIENT
  Age: 70 Year
  Sex: Female

DRUGS (3)
  1. AMELUZ [Suspect]
     Active Substance: AMINOLEVULINIC ACID HYDROCHLORIDE
     Indication: Actinic keratosis
     Route: 050
     Dates: start: 20241008, end: 20241008
  2. SYNTHROID [Concomitant]
     Active Substance: LEVOTHYROXINE SODIUM
     Indication: Hypothyroidism
  3. ESTRADIOL TRANSDERMAL SYSTEM [Concomitant]
     Active Substance: ESTRADIOL
     Indication: Menopause
     Route: 050

REACTIONS (2)
  - Drug ineffective for unapproved indication [Unknown]
  - Off label use [Recovered/Resolved]

NARRATIVE: CASE EVENT DATE: 20241008
